FAERS Safety Report 9643242 (Version 2)
Quarter: 2014Q1

REPORT INFORMATION
  Report Type: Spontaneous
  Country: IT (occurrence: IT)
  Receive Date: 20131024
  Receipt Date: 20140123
  Transmission Date: 20141002
  Serious: Yes (Other)
  Sender: FDA-Public Use
  Company Number: IT-SA-2013SA104719

PATIENT
  Age: 72 Year
  Sex: Female

DRUGS (7)
  1. LASIX [Suspect]
     Indication: PRODUCT USED FOR UNKNOWN INDICATION
     Route: 048
     Dates: start: 20130101, end: 20130729
  2. PRETERAX [Suspect]
     Indication: PRODUCT USED FOR UNKNOWN INDICATION
     Dosage: STRENGTH:2.5 MG/ 0.625 MG
     Route: 048
     Dates: start: 20130101, end: 20130729
  3. CARDIOASPIRIN [Concomitant]
  4. KCL [Concomitant]
  5. SEQUACOR [Concomitant]
  6. PRAVASELECT [Concomitant]
  7. ANTRA [Concomitant]

REACTIONS (4)
  - Dyspnoea [Recovering/Resolving]
  - Hypokalaemia [Recovering/Resolving]
  - Dehydration [Recovering/Resolving]
  - Headache [Recovering/Resolving]
